FAERS Safety Report 7522639-7 (Version None)
Quarter: 2011Q2

REPORT INFORMATION
  Report Type: 
  Country: None (occurrence: None)
  Receive Date: 20110603
  Receipt Date: 20110531
  Transmission Date: 20111010
  Serious: No
  Sender: FDA-Public Use
  Company Number: US-MYLANLABS-2011S1008607

PATIENT
  Age: 5 Year
  Sex: Male
  Weight: 16.6 kg

DRUGS (5)
  1. LEVOCARNITINE [Concomitant]
  2. ERYTHROMYCIN [Concomitant]
  3. CREATINE [Concomitant]
  4. ROCURONIUM BROMIDE [Suspect]
     Indication: PARALYSIS
     Dosage: GIVEN ONCE WITHOUT SUCCESS AND GIVEN SECOND 17MG DOSE RECHALLENGE WITHOUT SUCCESS.
     Route: 042
     Dates: start: 20110425, end: 20110425
  5. ROCURONIUM BROMIDE [Suspect]
     Dosage: GIVEN ONCE WITHOUT SUCCESS AND GIVEN SECOND 17MG DOSE RECHALLENGE WITHOUT SUCCESS.
     Route: 042
     Dates: start: 20110425, end: 20110425

REACTIONS (1)
  - DRUG INEFFECTIVE [None]
